FAERS Safety Report 8625954 (Version 2)
Quarter: 2013Q2

REPORT INFORMATION
  Report Type: Spontaneous
  Country: US (occurrence: US)
  Receive Date: 20120620
  Receipt Date: 20130411
  Transmission Date: 20140414
  Serious: Yes (Other)
  Sender: FDA-Public Use
  Company Number: PHHY2012US052018

PATIENT
  Age: 29 Year
  Sex: Female

DRUGS (3)
  1. PHENYTOIN [Suspect]
     Indication: GRAND MAL CONVULSION
  2. VALPROIC ACID [Suspect]
     Indication: GRAND MAL CONVULSION
  3. LORAZEPAM [Concomitant]
     Dosage: 2 MG

REACTIONS (1)
  - Gingival hyperplasia [Recovering/Resolving]
